FAERS Safety Report 21173003 (Version 2)
Quarter: 2022Q3

REPORT INFORMATION
  Report Type: Spontaneous
  Country: US (occurrence: US)
  Receive Date: 20220804
  Receipt Date: 20220820
  Transmission Date: 20221027
  Serious: Yes (Hospitalization)
  Sender: FDA-Public Use
  Company Number: US-TEVA-2022-US-2060072

PATIENT
  Age: 80 Year
  Sex: Female

DRUGS (12)
  1. HYDROMORPHONE [Suspect]
     Active Substance: HYDROMORPHONE
     Indication: Pain
     Dosage: VIA PATIENT CONTROLLED ANALGESIA
     Route: 065
  2. VALPROIC ACID [Suspect]
     Active Substance: VALPROIC ACID
     Indication: Adjuvant therapy
     Dosage: VIA NASOGASTRIC TUBE; FORMULATION: SYRUP; FREQUENCY: THREE TIMES/DAY
     Route: 048
     Dates: end: 20211120
  3. VALPROIC ACID [Suspect]
     Active Substance: VALPROIC ACID
     Indication: Analgesic therapy
  4. PROCHLORPERAZINE [Concomitant]
     Active Substance: PROCHLORPERAZINE
     Indication: Nausea
     Route: 065
  5. ONDANSETRON [Concomitant]
     Active Substance: ONDANSETRON
     Indication: Nausea
     Route: 065
  6. DILTIAZEM [Concomitant]
     Active Substance: DILTIAZEM
     Indication: Atrial fibrillation
     Route: 051
  7. SENNA [Concomitant]
     Active Substance: SENNA LEAF\SENNOSIDES\SENNOSIDES A AND B
     Indication: Prophylaxis
     Route: 065
  8. POTASSIUM PHOSPHATE [Concomitant]
     Active Substance: POTASSIUM PHOSPHATE
     Indication: Supplementation therapy
     Dosage: IV PIGGYBACK
     Route: 042
  9. POTASSIUM CHLORIDE [Concomitant]
     Active Substance: POTASSIUM CHLORIDE
     Indication: Supplementation therapy
     Route: 065
  10. MAGNESIUM SULFATE [Concomitant]
     Active Substance: MAGNESIUM SULFATE
     Indication: Supplementation therapy
     Dosage: IV PIGGYBACK
     Route: 042
  11. CALCIUM GLUCONATE [Concomitant]
     Active Substance: CALCIUM GLUCONATE
     Indication: Supplementation therapy
     Dosage: IV PIGGYBACK
     Route: 042
  12. SODIUM PHOSPHATE [Concomitant]
     Active Substance: SODIUM PHOSPHATE
     Indication: Supplementation therapy
     Route: 065

REACTIONS (3)
  - Fanconi syndrome acquired [Recovered/Resolved]
  - Hypophosphataemia [Recovered/Resolved]
  - Drug ineffective [Unknown]
